FAERS Safety Report 12830410 (Version 1)
Quarter: 2016Q4

REPORT INFORMATION
  Report Type: Spontaneous
  Country: US (occurrence: US)
  Receive Date: 20161007
  Receipt Date: 20161007
  Transmission Date: 20170207
  Serious: No
  Sender: FDA-Public Use
  Company Number: US-SA-2016SA131178

PATIENT
  Age: 52 Year
  Sex: Female

DRUGS (13)
  1. AMITRIPTYLINE [Concomitant]
     Active Substance: AMITRIPTYLINE
  2. ESCITALOPRAM [Concomitant]
     Active Substance: ESCITALOPRAM OXALATE
  3. KETOCONAZOLE. [Concomitant]
     Active Substance: KETOCONAZOLE
  4. OMEPRAZOLE. [Concomitant]
     Active Substance: OMEPRAZOLE
  5. AUBAGIO [Suspect]
     Active Substance: TERIFLUNOMIDE
     Indication: MULTIPLE SCLEROSIS
     Route: 048
     Dates: start: 201606
  6. ALEVE [Concomitant]
     Active Substance: NAPROXEN SODIUM
  7. IMODIUM [Concomitant]
     Active Substance: LOPERAMIDE HYDROCHLORIDE
  8. ALPRAZOLAM. [Concomitant]
     Active Substance: ALPRAZOLAM
  9. SUMATRIPTAN. [Concomitant]
     Active Substance: SUMATRIPTAN
  10. CLARITIN-D 12 HOUR [Concomitant]
     Active Substance: LORATADINE\PSEUDOEPHEDRINE SULFATE
  11. TOPIRAMATE. [Concomitant]
     Active Substance: TOPIRAMATE
  12. VITAMIN D3 [Concomitant]
     Active Substance: CHOLECALCIFEROL
  13. VENLAFAXINE [Concomitant]
     Active Substance: VENLAFAXINE HYDROCHLORIDE

REACTIONS (3)
  - Diarrhoea [Not Recovered/Not Resolved]
  - Insomnia [Not Recovered/Not Resolved]
  - Alopecia [Not Recovered/Not Resolved]

NARRATIVE: CASE EVENT DATE: 201606
